FAERS Safety Report 18785162 (Version 2)
Quarter: 2021Q4

REPORT INFORMATION
  Report Type: Spontaneous
  Country: GB (occurrence: GB)
  Receive Date: 20210125
  Receipt Date: 20211117
  Transmission Date: 20220303
  Serious: Yes (Hospitalization, Other)
  Sender: FDA-Public Use
  Company Number: GB-SA-2021SA003680

PATIENT
  Age: 68 Year
  Sex: Female
  Weight: 60.77 kg

DRUGS (5)
  1. RISEDRONATE SODIUM [Suspect]
     Active Substance: RISEDRONATE SODIUM
     Indication: Osteoporosis
     Dosage: 35 MILLIGRAM
     Route: 048
     Dates: start: 20160901, end: 20201001
  2. DEXAMETHASONE [Concomitant]
     Active Substance: DEXAMETHASONE
     Dosage: 1 GTT DROPS, QOD (1/12 MILLILITRES) EVERY 2 DAYS
  3. CHOLECALCIFEROL [Concomitant]
     Active Substance: CHOLECALCIFEROL
     Dosage: UNK
  4. THYROXINE [Concomitant]
     Active Substance: LEVOTHYROXINE
     Dosage: UNK
  5. VITAMIN B12                        /00056201/ [Concomitant]
     Dosage: UNK UNK, 4/5 WEEKLY

REACTIONS (6)
  - Abdominal pain lower [Not Recovered/Not Resolved]
  - Cholecystitis [Unknown]
  - Cholelithiasis [Unknown]
  - C-reactive protein increased [Unknown]
  - Frequent bowel movements [Unknown]
  - Diarrhoea [Unknown]

NARRATIVE: CASE EVENT DATE: 20180801
